FAERS Safety Report 22203923 (Version 1)
Quarter: 2023Q2

REPORT INFORMATION
  Report Type: Report from Study
  Country: CA (occurrence: CA)
  Receive Date: 20230412
  Receipt Date: 20230412
  Transmission Date: 20230722
  Serious: Yes (Other)
  Sender: FDA-Public Use
  Company Number: CA-GILEAD-2022-0606809

PATIENT
  Sex: Female

DRUGS (4)
  1. SACITUZUMAB GOVITECAN-HZIY [Suspect]
     Active Substance: SACITUZUMAB GOVITECAN-HZIY
     Indication: Triple negative breast cancer
     Dosage: 827 MG
     Route: 042
     Dates: start: 20220930, end: 20230317
  2. SACITUZUMAB GOVITECAN-HZIY [Suspect]
     Active Substance: SACITUZUMAB GOVITECAN-HZIY
     Dosage: CYCLE 2, DAY 8
     Route: 042
     Dates: start: 20221028, end: 20221028
  3. SACITUZUMAB GOVITECAN-HZIY [Suspect]
     Active Substance: SACITUZUMAB GOVITECAN-HZIY
     Dosage: CYCLE 3, DAY 8
     Route: 042
     Dates: start: 20221125, end: 20221125
  4. OLAPARIB [Concomitant]
     Active Substance: OLAPARIB

REACTIONS (2)
  - Disease progression [Unknown]
  - Viral infection [Not Recovered/Not Resolved]
